FAERS Safety Report 9445122 (Version 1)
Quarter: 2013Q3

REPORT INFORMATION
  Report Type: Spontaneous
  Country: CA (occurrence: CA)
  Receive Date: 20130807
  Receipt Date: 20130807
  Transmission Date: 20140515
  Serious: Yes (Hospitalization)
  Sender: FDA-Public Use
  Company Number: CA-MYLANLABS-2013S1016876

PATIENT
  Age: 48 Year
  Sex: Female

DRUGS (7)
  1. CLOZAPINE [Suspect]
     Indication: SCHIZOPHRENIA, PARANOID TYPE
     Dosage: 12.5MG
     Route: 065
  2. CLOZAPINE [Suspect]
     Indication: SCHIZOPHRENIA, PARANOID TYPE
     Dosage: 200MG
     Route: 065
  3. CLOZAPINE [Suspect]
     Indication: SCHIZOPHRENIA, PARANOID TYPE
     Dosage: INCREASED IN 25MG INCREMENTS TO 325MG
     Route: 065
  4. COTRIMOXAZOLE [Suspect]
     Indication: URINARY TRACT INFECTION
     Dosage: 800MG/160MG TWICE DAILY
     Route: 065
  5. LORAZEPAM [Concomitant]
     Indication: SCHIZOPHRENIA, PARANOID TYPE
     Route: 065
  6. OLANZAPINE [Concomitant]
     Indication: SCHIZOPHRENIA, PARANOID TYPE
     Route: 065
  7. PSYLLIUM /01328801/ [Concomitant]
     Indication: CONSTIPATION
     Route: 065

REACTIONS (2)
  - Hepatitis [Recovering/Resolving]
  - Toxicity to various agents [Recovering/Resolving]
